FAERS Safety Report 7626817-8 (Version None)
Quarter: 2011Q3

REPORT INFORMATION
  Report Type: 
  Country: None (occurrence: None)
  Receive Date: 20110721
  Receipt Date: 20110711
  Transmission Date: 20111222
  Serious: Yes (Hospitalization, Other)
  Sender: FDA-Public Use
  Company Number: US-BAYER-201021394NA

PATIENT
  Age: 24 Year
  Sex: Female
  Weight: 42.177 kg

DRUGS (1)
  1. YAZ [Suspect]
     Indication: PRODUCT USED FOR UNKNOWN INDICATION
     Dosage: UNK
     Route: 048
     Dates: start: 20071001, end: 20080401

REACTIONS (2)
  - PULMONARY THROMBOSIS [None]
  - PULMONARY EMBOLISM [None]
